FAERS Safety Report 6825170-7 (Version None)
Quarter: 2010Q3

REPORT INFORMATION
  Report Type: 
  Country: None (occurrence: None)
  Receive Date: 20100708
  Receipt Date: 20061229
  Transmission Date: 20110219
  Serious: Yes (Other)
  Sender: FDA-Public Use
  Company Number: US-PFIZER INC-2007000434

PATIENT
  Sex: Female
  Weight: 61.2 kg

DRUGS (11)
  1. CHANTIX [Suspect]
     Indication: SMOKING CESSATION THERAPY
     Dosage: UNK
     Dates: start: 20061201
  2. SPIRIVA [Suspect]
     Dosage: UNK
     Dates: start: 20040801
  3. LOTREL [Concomitant]
  4. HYDROCHLOROTHIAZIDE [Concomitant]
  5. TOPROL-XL [Concomitant]
  6. LIPITOR [Concomitant]
  7. ASPIRIN [Concomitant]
  8. MULTI-VITAMINS [Concomitant]
  9. AMBIEN [Concomitant]
  10. LUNESTA [Concomitant]
  11. XANAX [Concomitant]

REACTIONS (2)
  - BRONCHITIS CHRONIC [None]
  - DYSPNOEA [None]
